FAERS Safety Report 9556699 (Version 1)
Quarter: 2013Q3

REPORT INFORMATION
  Report Type: Spontaneous
  Country: US (occurrence: None)
  Receive Date: 20130909
  Receipt Date: 20130909
  Transmission Date: 20140515
  Serious: Yes (Hospitalization)
  Sender: FDA-Public Use
  Company Number: 372509

PATIENT
  Age: 78 Year
  Sex: Female
  Weight: 111.1 kg

DRUGS (16)
  1. VICTOZA (LIRAGLUTIDE) SOLUTION FOR INJECTION, 6MG/ML [Suspect]
     Indication: TYPE 2 DIABETES MELLITUS
     Route: 058
     Dates: start: 201209, end: 201301
  2. GLIPIZIDE (GLIPIZIDE) [Concomitant]
  3. GLUCOPHAGE (METFORMIN HYDROCHLORIDE) [Concomitant]
  4. METAMUCIL /00029101/ (PLANTAGO OVATA) [Concomitant]
  5. PLAVIX (CLOPIDOGREL BISULFATE) [Concomitant]
  6. NORVASC (AMLODIPINE BESILATE) [Concomitant]
  7. LIPITOR (ATORVASTATIN CALCIUM) [Concomitant]
  8. ASPIRIN (ACETYLSALICYLIC ACID) [Concomitant]
  9. LYRICA (PREGABALIN) [Suspect]
  10. SYNTHROID (LEVOTHYROXINE SODIUM) [Concomitant]
  11. ACTOS (PIOGLITAZONE HYDROCHLORIDE) [Concomitant]
  12. DETROL LA (TOLTERODINE L-TARTRATE) [Concomitant]
  13. VITAMIN B12 /000556201/ (CYANOCOBALAMIN) [Concomitant]
  14. FOLIC ACID (FOLIC ACID) [Concomitant]
  15. METFORMIN (METFORMIN) [Concomitant]
  16. AMLODIPINE (AMLODIPINE) [Concomitant]

REACTIONS (10)
  - Pancreatitis acute [None]
  - Liver function test abnormal [None]
  - Generalised oedema [None]
  - Dysuria [None]
  - Gastrointestinal sounds abnormal [None]
  - Eructation [None]
  - Gastritis [None]
  - Glomerular filtration rate decreased [None]
  - Dyspepsia [None]
  - Constipation [None]
